FAERS Safety Report 11273336 (Version 1)
Quarter: 2015Q3

REPORT INFORMATION
  Report Type: Spontaneous
  Country: US (occurrence: US)
  Receive Date: 20150715
  Receipt Date: 20150715
  Transmission Date: 20151125
  Serious: Yes (Death)
  Sender: FDA-Public Use
  Company Number: US-BEH-2015052433

PATIENT
  Sex: Female

DRUGS (2)
  1. IVIG [Suspect]
     Active Substance: HUMAN IMMUNOGLOBULIN G
     Dosage: ON 3RD DAY OF LIFE
     Route: 042
  2. IVIG [Suspect]
     Active Substance: HUMAN IMMUNOGLOBULIN G
     Indication: HEREDITARY HAEMOCHROMATOSIS
     Dosage: ON 8TH DAY OF LIFE
     Route: 042

REACTIONS (2)
  - Hereditary haemochromatosis [Fatal]
  - Drug ineffective for unapproved indication [Fatal]
